FAERS Safety Report 25133999 (Version 1)
Quarter: 2025Q1

REPORT INFORMATION
  Report Type: Report from Study
  Country: US (occurrence: US)
  Receive Date: 20250328
  Receipt Date: 20250328
  Transmission Date: 20250409
  Serious: Yes (Other)
  Sender: pharmaAND
  Company Number: US-Pharmaand-2024001230

PATIENT
  Sex: Female

DRUGS (1)
  1. RUBRACA [Suspect]
     Active Substance: RUCAPARIB CAMSYLATE
     Indication: Ovarian cancer
     Dosage: 300 MG TWICE DAILY
     Route: 048
     Dates: start: 201710

REACTIONS (4)
  - Viral pericarditis [Not Recovered/Not Resolved]
  - Blepharitis [Unknown]
  - Emergency care examination [Unknown]
  - Paraesthesia [Unknown]
